FAERS Safety Report 7893198-4 (Version None)
Quarter: 2011Q4

REPORT INFORMATION
  Report Type: 
  Country: None (occurrence: None)
  Receive Date: 20111104
  Receipt Date: 20111025
  Transmission Date: 20120403
  Serious: Yes (Other)
  Sender: FDA-Public Use
  Company Number: PHHY2009US66795

PATIENT
  Sex: Male
  Weight: 123 kg

DRUGS (21)
  1. PREDNISONE [Concomitant]
     Dosage: 2 X 1 MG
     Route: 048
  2. NORCO [Concomitant]
     Dosage: AS NEEDED
  3. FRAGMIN [Concomitant]
     Dosage: 18 KIU, UNK
  4. ATIVAN [Concomitant]
     Dosage: 1 MG, UNK
  5. LASIX [Concomitant]
     Dosage: 40 MG, UNK
  6. SOLIRIS [Concomitant]
     Dosage: 900 MG EVERY 12 DAYS IN 150 ML IV OVER 30- 45 MINUTES
     Route: 042
  7. DILAUDID [Concomitant]
     Dosage: 2 MG, PRN
  8. EXJADE [Suspect]
     Dosage: 3 X 125 MG
     Route: 048
  9. ASPIRIN [Concomitant]
     Dosage: 81 MG, UNK
  10. PROCRIT [Concomitant]
     Dosage: WEEKLY
     Dates: end: 20110101
  11. LEVBID [Concomitant]
     Dosage: 0.375 CR AS NEEDED
  12. EXJADE [Suspect]
     Indication: HAEMOGLOBINURIA
     Dosage: 500 MG, UNK
     Route: 048
  13. EXJADE [Suspect]
     Indication: IRON OVERLOAD
     Dosage: 375 MG DAILY
     Route: 048
     Dates: start: 20110601
  14. ADVAIR DISKUS 100/50 [Concomitant]
     Dosage: 500/50
  15. MS CONTIN [Concomitant]
     Dosage: 15 MG, BID
  16. RESTORIL [Concomitant]
     Dosage: 15 MG, UNK
  17. NEUPOGEN [Concomitant]
     Dosage: AS NEEDED
  18. ZANAFLEX [Concomitant]
     Dosage: 4 MG, UNK
  19. VALIUM [Concomitant]
     Dosage: 5 MG, PRN
  20. LYRICA [Concomitant]
     Dosage: 100 MG, UNK
  21. PROTONIX [Concomitant]
     Dosage: 2 X 40 MG

REACTIONS (10)
  - LEFT ATRIAL DILATATION [None]
  - TONSILLAR HYPERTROPHY [None]
  - TRICUSPID VALVE INCOMPETENCE [None]
  - PHARYNGITIS [None]
  - MALAISE [None]
  - ABDOMINAL DISCOMFORT [None]
  - BLOOD BILIRUBIN INCREASED [None]
  - CANDIDIASIS [None]
  - TONSILLITIS [None]
  - DYSPHAGIA [None]
